FAERS Safety Report 9114164 (Version 2)
Quarter: 2013Q1

REPORT INFORMATION
  Report Type: Report from Study
  Country: JP (occurrence: JP)
  Receive Date: 20130208
  Receipt Date: 20130314
  Transmission Date: 20140127
  Serious: Yes (Death, Other)
  Sender: FDA-Public Use
  Company Number: JP-ROCHE-1187261

PATIENT
  Age: 72 Year
  Sex: Male

DRUGS (12)
  1. METHOXY POLYETHYLENE GLYCOL-EPOETIN BETA [Suspect]
     Indication: NEPHROGENIC ANAEMIA
     Route: 058
     Dates: start: 20121216, end: 20121216
  2. SULBACILLINE [Concomitant]
     Route: 042
     Dates: end: 20121230
  3. NICHISTATE [Concomitant]
     Route: 048
     Dates: end: 20130108
  4. BLOPRESS [Concomitant]
     Indication: HYPERTENSION
     Route: 048
     Dates: end: 20130108
  5. CORINAEL [Concomitant]
     Route: 048
     Dates: end: 20130108
  6. LIVALO [Concomitant]
     Indication: HYPERLIPIDAEMIA
     Route: 048
     Dates: end: 20130108
  7. CIBENOL [Concomitant]
     Indication: ARRHYTHMIA
     Route: 048
     Dates: end: 20130108
  8. KREMEZIN [Concomitant]
     Indication: RENAL FAILURE CHRONIC
     Route: 048
     Dates: end: 20130108
  9. THYRADIN-S [Concomitant]
     Indication: GOITRE
     Route: 048
     Dates: end: 20130108
  10. CALCIUM LACTATE [Concomitant]
     Route: 048
     Dates: end: 20130108
  11. D-ALFA [Concomitant]
     Route: 048
     Dates: end: 20130108
  12. FEROTYM [Concomitant]
     Indication: RENAL FAILURE CHRONIC
     Route: 048
     Dates: start: 20121216, end: 20130108

REACTIONS (6)
  - Post procedural pneumonia [Fatal]
  - Malignant pleural effusion [Fatal]
  - Pleural effusion [Fatal]
  - Retroperitoneal abscess [Unknown]
  - Metastases to lymph nodes [Unknown]
  - Metastases to lymph nodes [Unknown]
